FAERS Safety Report 5763229-6 (Version None)
Quarter: 2008Q2

REPORT INFORMATION
  Report Type: 
  Country: None (occurrence: None)
  Receive Date: 20080604
  Receipt Date: 20080523
  Transmission Date: 20081010
  Serious: Yes (Hospitalization)
  Sender: FDA-Public Use
  Company Number: S08-USA-01895-01

PATIENT
  Age: 81 Year
  Sex: Male

DRUGS (4)
  1. LEXAPRO [Suspect]
     Indication: DEPRESSION
     Dosage: 10 MG QD PO
     Route: 048
     Dates: start: 20070501, end: 20080523
  2. LISINOPRIL [Concomitant]
  3. METOPROLOL [Concomitant]
  4. PRILOSEC [Concomitant]

REACTIONS (4)
  - MEMORY IMPAIRMENT [None]
  - PROSTATOMEGALY [None]
  - RENAL FAILURE [None]
  - SOMNOLENCE [None]
